FAERS Safety Report 9922361 (Version 1)
Quarter: 2014Q1

REPORT INFORMATION
  Report Type: Spontaneous
  Country: US (occurrence: US)
  Receive Date: 20140225
  Receipt Date: 20140225
  Transmission Date: 20141002
  Serious: Yes (Other)
  Sender: FDA-Public Use
  Company Number: US-TEVA-464437USA

PATIENT
  Age: 28 Year
  Sex: Female
  Weight: 52.66 kg

DRUGS (1)
  1. PARAGARD [Suspect]
     Indication: POST COITAL CONTRACEPTION
     Route: 015
     Dates: start: 20140217, end: 20140220

REACTIONS (1)
  - Device dislocation [Recovered/Resolved]
